FAERS Safety Report 6031725-2 (Version None)
Quarter: 2009Q1

REPORT INFORMATION
  Report Type: 
  Country: None (occurrence: None)
  Receive Date: 20090108
  Receipt Date: 20090105
  Transmission Date: 20090719
  Serious: Yes (Other)
  Sender: FDA-Public Use
  Company Number: D0058356A

PATIENT
  Age: 13 Year
  Sex: Male

DRUGS (2)
  1. VIANI MITE [Suspect]
     Dosage: 150MCG PER DAY
     Route: 055
     Dates: start: 20060503, end: 20080810
  2. FLUTIDE MITE [Suspect]
     Dosage: 100MCG PER DAY
     Route: 055
     Dates: start: 20060503, end: 20080810

REACTIONS (4)
  - GLAUCOMA [None]
  - INTRAOCULAR PRESSURE INCREASED [None]
  - OPTIC NERVE CUPPING [None]
  - OPTIC NERVE DISORDER [None]
